FAERS Safety Report 14937608 (Version 2)
Quarter: 2018Q2

REPORT INFORMATION
  Report Type: Report from Study
  Country: DE (occurrence: DE)
  Receive Date: 20180525
  Receipt Date: 20180529
  Transmission Date: 20180711
  Serious: Yes (Other)
  Sender: FDA-Public Use
  Company Number: PHHY2018DE003997

PATIENT
  Age: 32 Year
  Sex: Female
  Weight: 63 kg

DRUGS (3)
  1. ILARIS [Suspect]
     Active Substance: CANAKINUMAB
     Dosage: 300 MG PER APPLICATION
     Route: 058
     Dates: start: 20180216
  2. ILARIS [Suspect]
     Active Substance: CANAKINUMAB
     Indication: MUCKLE-WELLS SYNDROME
     Dosage: 300 MG PER APPLICATION
     Route: 058
     Dates: start: 20171115
  3. ILARIS [Suspect]
     Active Substance: CANAKINUMAB
     Dosage: 300 MG PER APPLICATION
     Route: 058
     Dates: start: 20171206

REACTIONS (4)
  - Pyelitis [Recovered/Resolved]
  - Tooth infection [Recovered/Resolved]
  - Pneumonia [Recovered/Resolved]
  - Pyelitis [Recovered/Resolved]

NARRATIVE: CASE EVENT DATE: 20171128
